FAERS Safety Report 15050359 (Version 1)
Quarter: 2018Q2

REPORT INFORMATION
  Report Type: Report from Study
  Country: None (occurrence: BR)
  Receive Date: 20180622
  Receipt Date: 20180622
  Transmission Date: 20180711
  Serious: Yes (Other)
  Sender: FDA-Public Use
  Company Number: BR-ABBVIE-18K-020-2392082-00

PATIENT
  Age: 67 Year
  Sex: Female
  Weight: 90 kg

DRUGS (4)
  1. GLIFAGE XR [Concomitant]
     Active Substance: METFORMIN HYDROCHLORIDE
     Indication: DIABETES MELLITUS
  2. JARDIANCE [Concomitant]
     Active Substance: EMPAGLIFLOZIN
     Indication: DIABETES MELLITUS
  3. HUMIRA [Suspect]
     Active Substance: ADALIMUMAB
     Indication: PSORIATIC ARTHROPATHY
     Route: 058
     Dates: start: 20050901
  4. POTASSIC LOSARTAN [Concomitant]
     Indication: BLOOD PRESSURE MEASUREMENT

REACTIONS (7)
  - Dizziness [Recovered/Resolved]
  - Arthralgia [Recovering/Resolving]
  - Weight decreased [Recovered/Resolved]
  - Joint swelling [Recovering/Resolving]
  - Aneurysm [Recovered/Resolved]
  - Haemorrhage [Unknown]
  - Osteopenia [Unknown]

NARRATIVE: CASE EVENT DATE: 20170615
